FAERS Safety Report 6951368-3 (Version None)
Quarter: 2010Q3

REPORT INFORMATION
  Report Type: 
  Country: None (occurrence: None)
  Receive Date: 20100828
  Receipt Date: 20100319
  Transmission Date: 20110219
  Serious: No
  Sender: FDA-Public Use
  Company Number: US-ABBOTT-10P-163-0634788-00

PATIENT
  Age: 73 Year
  Sex: Male

DRUGS (18)
  1. NIASPAN [Suspect]
     Indication: BLOOD TRIGLYCERIDES INCREASED
     Route: 048
     Dates: start: 20100201, end: 20100318
  2. NIASPAN [Suspect]
     Indication: BLOOD TRIGLYCERIDES INCREASED
     Dates: start: 20100318
  3. ASPIRIN [Concomitant]
     Indication: PROPHYLAXIS
     Dates: start: 20100201
  4. ASPIRIN [Concomitant]
     Indication: ADVERSE DRUG REACTION
  5. METOPROLOL [Concomitant]
     Indication: HYPERTENSION
     Route: 048
  6. FLOMAX [Concomitant]
     Indication: PROSTATIC DISORDER
  7. ALLOPURINOL [Concomitant]
     Indication: PROPHYLAXIS
  8. ALLOPURINOL [Concomitant]
     Indication: NEPHROLITHIASIS
  9. JANUVIA [Concomitant]
     Indication: DIABETES MELLITUS
  10. QUINAPRIL [Concomitant]
     Indication: CARDIAC DISORDER
  11. VITAMINS [Concomitant]
     Indication: MACULAR DEGENERATION
  12. FISH OIL [Concomitant]
     Indication: SUPPLEMENTATION THERAPY
     Dosage: 1000MG DAILY
  13. LEUTEN [Concomitant]
     Indication: EYE DISORDER
  14. MULTI-VITAMIN [Concomitant]
     Indication: VITAMIN SUPPLEMENTATION
  15. ZINC [Concomitant]
     Indication: MINERAL SUPPLEMENTATION
  16. GLYBURIDE [Concomitant]
     Indication: DIABETES MELLITUS
     Dosage: FORM STRENGTH - 5MG
  17. SIMVASTATIN [Concomitant]
     Indication: PRODUCT USED FOR UNKNOWN INDICATION
  18. ASPIRIN [Concomitant]
     Indication: PRODUCT USED FOR UNKNOWN INDICATION

REACTIONS (3)
  - ABDOMINAL DISCOMFORT [None]
  - DIARRHOEA [None]
  - FLATULENCE [None]
